FAERS Safety Report 15889243 (Version 2)
Quarter: 2019Q1

REPORT INFORMATION
  Report Type: Report from Study
  Country: NL (occurrence: NL)
  Receive Date: 20190130
  Receipt Date: 20190208
  Transmission Date: 20190417
  Serious: Yes (Other)
  Sender: FDA-Public Use
  Company Number: NL-PFIZER INC-2019034729

PATIENT
  Sex: Male

DRUGS (17)
  1. ENDOXAN [CYCLOPHOSPHAMIDE MONOHYDRATE] [Suspect]
     Active Substance: CYCLOPHOSPHAMIDE
     Indication: NON-HODGKIN^S LYMPHOMA
     Dosage: 6 CYCLES OF CHOP REGIMEN.
  2. CYTARABINE. [Suspect]
     Active Substance: CYTARABINE
     Indication: NON-HODGKIN^S LYMPHOMA
     Dosage: BEAM REGIMEN
  3. ETOPOSIDE. [Suspect]
     Active Substance: ETOPOSIDE
     Indication: NON-HODGKIN^S LYMPHOMA
     Dosage: BEAM REGIMEN
  4. MELPHALAN. [Suspect]
     Active Substance: MELPHALAN
     Indication: STEM CELL TRANSPLANT
     Dosage: BEAM REGIMEN
  5. DOXORUBICIN [Suspect]
     Active Substance: DOXORUBICIN
     Indication: NON-HODGKIN^S LYMPHOMA
     Dosage: 6 CYCLES OF CHOP REGIMEN
  6. ERYTHROPOIETIN [Concomitant]
     Active Substance: ERYTHROPOIETIN
     Indication: TRANSPLANT FAILURE
     Dosage: UNK
  7. DEXAMETHASONE. [Suspect]
     Active Substance: DEXAMETHASONE
     Indication: NON-HODGKIN^S LYMPHOMA
     Dosage: DHAP-VIM-DHAP REGIMEN
  8. METHOTREXATE. [Suspect]
     Active Substance: METHOTREXATE
     Indication: NON-HODGKIN^S LYMPHOMA
     Dosage: DHAP-VIM-DHAP REGIMEN
  9. CISPLATIN. [Suspect]
     Active Substance: CISPLATIN
     Indication: NON-HODGKIN^S LYMPHOMA
     Dosage: DHAP-VIM-DHAP REGIMEN
  10. ETOPOSIDE. [Suspect]
     Active Substance: ETOPOSIDE
     Dosage: DHAP-VIM-DHAP REGIMEN
  11. CYTARABINE. [Suspect]
     Active Substance: CYTARABINE
     Dosage: DHAP-VIM-DHAP REGIMEN
  12. IFEX [Suspect]
     Active Substance: IFOSFAMIDE
     Indication: NON-HODGKIN^S LYMPHOMA
     Dosage: DHAP-VIM-DHAP REGIMEN
  13. PREDNISONE. [Suspect]
     Active Substance: PREDNISONE
     Indication: NON-HODGKIN^S LYMPHOMA
     Dosage: 6 CYCLES OF CHOP REGIMEN
     Route: 065
  14. VINCRISTINE [Suspect]
     Active Substance: VINCRISTINE
     Indication: NON-HODGKIN^S LYMPHOMA
     Dosage: 6 CYCLES OF CHOP REGIMEN
     Route: 065
  15. MELPHALAN. [Suspect]
     Active Substance: MELPHALAN
     Indication: BONE MARROW CONDITIONING REGIMEN
  16. DANAZOL. [Concomitant]
     Active Substance: DANAZOL
     Indication: TRANSPLANT FAILURE
     Dosage: UNK
  17. CARMUSTINE. [Suspect]
     Active Substance: CARMUSTINE
     Indication: STEM CELL TRANSPLANT
     Dosage: BEAM REGIMEN

REACTIONS (2)
  - Second primary malignancy [Unknown]
  - Myelodysplastic syndrome [Unknown]
